FAERS Safety Report 26135764 (Version 1)
Quarter: 2025Q4

REPORT INFORMATION
  Report Type: Spontaneous
  Country: EU (occurrence: EU)
  Receive Date: 20251209
  Receipt Date: 20251209
  Transmission Date: 20260117
  Serious: Yes (Hospitalization, Other)
  Sender: PFIZER
  Company Number: EU-PFIZER INC-PV202500143261

PATIENT
  Age: 36 Year
  Sex: Female

DRUGS (1)
  1. ETHINYL ESTRADIOL\LEVONORGESTREL [Suspect]
     Active Substance: ETHINYL ESTRADIOL\LEVONORGESTREL
     Indication: Contraception
     Dosage: UNK
     Dates: start: 201404

REACTIONS (11)
  - Headache [Unknown]
  - Language disorder [Unknown]
  - Migraine [Unknown]
  - Hemiplegia [Unknown]
  - Ischaemic stroke [Unknown]
  - Cerebral artery occlusion [Unknown]
  - Hemianopia [Unknown]
  - Dysarthria [Unknown]
  - Motor dysfunction [Unknown]
  - Clumsiness [Unknown]
  - Fatigue [Unknown]

NARRATIVE: CASE EVENT DATE: 20151201
